FAERS Safety Report 6440324-X (Version None)
Quarter: 2009Q4

REPORT INFORMATION
  Report Type: 
  Country: None (occurrence: None)
  Receive Date: 20091112
  Receipt Date: 20091112
  Transmission Date: 20100525
  Serious: No
  Sender: FDA-Public Use
  Company Number: None

PATIENT
  Age: 45 Month
  Sex: Male

DRUGS (1)
  1. ALLOPURINOL [Suspect]
     Indication: SCHIZOAFFECTIVE DISORDER

REACTIONS (2)
  - RASH ERYTHEMATOUS [None]
  - RASH MACULO-PAPULAR [None]
